FAERS Safety Report 24320256 (Version 1)
Quarter: 2024Q3

REPORT INFORMATION
  Report Type: Spontaneous
  Country: US (occurrence: US)
  Receive Date: 20240914
  Receipt Date: 20240914
  Transmission Date: 20241016
  Serious: No
  Sender: ABBVIE
  Company Number: US-ABBVIE-5916083

PATIENT
  Sex: Female

DRUGS (1)
  1. HUMIRA [Suspect]
     Active Substance: ADALIMUMAB
     Indication: Rheumatoid arthritis
     Dosage: DURATION TEXT: LONG TIME
     Route: 058
     Dates: start: 2020

REACTIONS (3)
  - Drug specific antibody present [Unknown]
  - Pain [Unknown]
  - Rash [Unknown]
